FAERS Safety Report 9753597 (Version 1)
Quarter: 2013Q4

REPORT INFORMATION
  Report Type: Spontaneous
  Country: DE (occurrence: DE)
  Receive Date: 20131213
  Receipt Date: 20131213
  Transmission Date: 20140711
  Serious: Yes (Other)
  Sender: FDA-Public Use
  Company Number: PHHY2013DE141899

PATIENT
  Age: 65 Year
  Sex: Male

DRUGS (3)
  1. MYCOPHENOLIC ACID [Suspect]
     Indication: IMMUNOSUPPRESSION
  2. TACROLIMUS [Concomitant]
     Indication: IMMUNOSUPPRESSION
  3. PREDNISOLONE [Concomitant]
     Indication: IMMUNOSUPPRESSION

REACTIONS (3)
  - Pneumonitis [Recovered/Resolved]
  - Lung infiltration [Recovered/Resolved]
  - Transplant rejection [Recovered/Resolved]
